FAERS Safety Report 9689808 (Version 1)
Quarter: 2013Q4

REPORT INFORMATION
  Report Type: Other
  Country: PT (occurrence: PT)
  Receive Date: 20131115
  Receipt Date: 20131115
  Transmission Date: 20140711
  Serious: Yes (Hospitalization)
  Sender: FDA-Public Use
  Company Number: PT-BRISTOL-MYERS SQUIBB COMPANY-19806371

PATIENT
  Age: 76 Year
  Sex: Female

DRUGS (4)
  1. METFORMIN HCL [Suspect]
  2. SITAGLIPTIN PHOSPHATE [Concomitant]
  3. SIMVASTATIN [Concomitant]
  4. LOSARTAN POTASSIUM [Concomitant]

REACTIONS (6)
  - Respiratory failure [Recovered/Resolved]
  - Renal failure acute [Recovered/Resolved]
  - Multi-organ failure [Recovered/Resolved]
  - Hypovolaemic shock [Recovered/Resolved]
  - Dehydration [Recovered/Resolved]
  - Lactic acidosis [Recovered/Resolved]
